FAERS Safety Report 23314357 (Version 1)
Quarter: 2023Q4

REPORT INFORMATION
  Report Type: Spontaneous
  Country: US (occurrence: None)
  Receive Date: 20231219
  Receipt Date: 20231219
  Transmission Date: 20240109
  Serious: Yes (unspecified)
  Sender: FDA-Public Use
  Company Number: None

PATIENT
  Age: 82 Year
  Sex: Male
  Weight: 55.3 kg

DRUGS (3)
  1. DAPTOMYCIN [Suspect]
     Active Substance: DAPTOMYCIN
     Indication: Staphylococcal bacteraemia
     Dosage: FREQUENCY : DAILY;?
     Route: 042
     Dates: start: 20230905, end: 20231109
  2. DAPTOMYCIN [Suspect]
     Active Substance: DAPTOMYCIN
     Indication: Osteomyelitis
  3. DAPTOMYCIN [Suspect]
     Active Substance: DAPTOMYCIN
     Indication: Endocarditis

REACTIONS (12)
  - Back pain [None]
  - Muscular weakness [None]
  - Hypophagia [None]
  - Urine output decreased [None]
  - Confusional state [None]
  - Asthenia [None]
  - Abdominal distension [None]
  - Sepsis [None]
  - White blood cell count increased [None]
  - Eosinophil percentage increased [None]
  - Eosinophilic pneumonia [None]
  - Respiratory failure [None]

NARRATIVE: CASE EVENT DATE: 20231109
